FAERS Safety Report 17901674 (Version 1)
Quarter: 2020Q2

REPORT INFORMATION
  Report Type: Spontaneous
  Country: DE (occurrence: DE)
  Receive Date: 20200616
  Receipt Date: 20200616
  Transmission Date: 20200714
  Serious: Yes (Other)
  Sender: FDA-Public Use
  Company Number: DE-PFIZER INC-2020231672

PATIENT
  Age: 56 Year
  Sex: Male
  Weight: 106 kg

DRUGS (2)
  1. RAMILICH [Suspect]
     Active Substance: RAMIPRIL
     Indication: HYPERTENSION
     Dosage: 5 MG (1-0-0 PRESCRIBED)
     Route: 065
     Dates: start: 2020
  2. RAMILICH [Suspect]
     Active Substance: RAMIPRIL
     Dosage: 2.5 MG (1-0-0 PRESCRIBED)
     Route: 065
     Dates: start: 2020

REACTIONS (6)
  - Hiccups [Recovered/Resolved]
  - Priapism [Recovered/Resolved]
  - Heart rate increased [Recovering/Resolving]
  - Haemorrhoidal haemorrhage [Recovered/Resolved]
  - Contusion [Recovering/Resolving]
  - Circulatory collapse [Unknown]

NARRATIVE: CASE EVENT DATE: 20200502
